FAERS Safety Report 4885085-0 (Version None)
Quarter: 2006Q1

REPORT INFORMATION
  Report Type: 
  Country: None (occurrence: None)
  Receive Date: 20060119
  Receipt Date: 20060110
  Transmission Date: 20060701
  Serious: Yes (Other)
  Sender: FDA-Public Use
  Company Number: JP-SANOFI-SYNTHELABO-A01200600161

PATIENT
  Age: 41 Year
  Sex: Female

DRUGS (5)
  1. MYSLEE [Suspect]
     Indication: DRUG USE FOR UNKNOWN INDICATION
     Dosage: 10 MG
     Route: 048
     Dates: start: 20050708, end: 20051007
  2. PARIET [Concomitant]
     Indication: DRUG USE FOR UNKNOWN INDICATION
     Dosage: 20 MG
     Route: 065
  3. TANNALBIN [Concomitant]
     Dosage: UNK
     Route: 065
  4. ADSORBIN [Concomitant]
     Dosage: UNK
     Route: 065
  5. BIOFERMIN [Concomitant]
     Dosage: UNK
     Route: 065

REACTIONS (1)
  - CONVULSION [None]
